FAERS Safety Report 5512517-7 (Version None)
Quarter: 2007Q4

REPORT INFORMATION
  Report Type: 
  Country: None (occurrence: None)
  Receive Date: 20071112
  Receipt Date: 20070606
  Transmission Date: 20080405
  Serious: No
  Sender: FDA-Public Use
  Company Number: A0654412A

PATIENT
  Age: 69 Year
  Sex: Female

DRUGS (3)
  1. AVANDAMET [Suspect]
     Route: 048
     Dates: start: 20070313
  2. LISINOPRIL [Concomitant]
  3. MINIZIDE [Concomitant]

REACTIONS (3)
  - DIARRHOEA [None]
  - MUSCLE SPASMS [None]
  - WEIGHT DECREASED [None]
